FAERS Safety Report 8977666 (Version 2)
Quarter: 2013Q1

REPORT INFORMATION
  Report Type: Report from Study
  Country: US (occurrence: US)
  Receive Date: 20121219
  Receipt Date: 20130121
  Transmission Date: 20140127
  Serious: Yes (Other)
  Sender: FDA-Public Use
  Company Number: US-PURDUE-USA-2012-0095859

PATIENT
  Sex: Male
  Weight: 87.08 kg

DRUGS (2)
  1. OXYCONTIN (NDA 22-272) [Suspect]
     Indication: LUNG NEOPLASM MALIGNANT
     Dosage: 80 MG, Q12H
     Route: 048
  2. OXYCONTIN (NDA 22-272) [Suspect]
     Indication: ARTHRITIS
     Dosage: 120 MG, Q12H
     Route: 048
     Dates: start: 201210

REACTIONS (5)
  - Lung adenocarcinoma [Unknown]
  - Spinal osteoarthritis [Unknown]
  - Fall [Unknown]
  - Pain [Unknown]
  - Back pain [Not Recovered/Not Resolved]
